FAERS Safety Report 25406514 (Version 1)
Quarter: 2025Q2

REPORT INFORMATION
  Report Type: Spontaneous
  Country: US (occurrence: US)
  Receive Date: 20250606
  Receipt Date: 20250606
  Transmission Date: 20250716
  Serious: Yes (Hospitalization)
  Sender: NOVARTIS
  Company Number: US-002147023-NVSC2025US090459

PATIENT
  Age: 76 Year
  Sex: Male

DRUGS (1)
  1. LEQVIO [Suspect]
     Active Substance: INCLISIRAN SODIUM
     Indication: Low density lipoprotein increased
     Route: 058
     Dates: start: 20250303, end: 20250303

REACTIONS (8)
  - Abdominal pain [Unknown]
  - Chest pain [Unknown]
  - Gastrointestinal disorder [Recovering/Resolving]
  - Blood creatine phosphokinase increased [Unknown]
  - Decubitus ulcer [Unknown]
  - Muscle spasms [Recovering/Resolving]
  - Constipation [Recovering/Resolving]
  - Abdominal distension [Not Recovered/Not Resolved]

NARRATIVE: CASE EVENT DATE: 20250325
